FAERS Safety Report 8933786 (Version 1)
Quarter: 2012Q4

REPORT INFORMATION
  Report Type: 
  Country: US (occurrence: US)
  Receive Date: 20121129
  Receipt Date: 20121129
  Transmission Date: 20130627
  Serious: Yes (Hospitalization)
  Sender: FDA-Public Use
  Company Number: US-CELGENEUS-163-21880-12112770

PATIENT
  Sex: Male
  Weight: 74.91 kg

DRUGS (2)
  1. REVLIMID [Suspect]
     Indication: MULTIPLE MYELOMA WITHOUT MENTION OF REMISSION
     Dosage: 10 Milligram
     Route: 048
     Dates: start: 20110906
  2. REVLIMID [Suspect]
     Dosage: 10 Milligram
     Route: 048
     Dates: end: 2012

REACTIONS (1)
  - Nephrolithiasis [Unknown]
